FAERS Safety Report 18355332 (Version 2)
Quarter: 2020Q4

REPORT INFORMATION
  Report Type: Spontaneous
  Country: AT (occurrence: AT)
  Receive Date: 20201007
  Receipt Date: 20201022
  Transmission Date: 20210114
  Serious: Yes (Death, Life-Threatening, Other)
  Sender: FDA-Public Use
  Company Number: AT-AMGEN-AUTSP2020158824

PATIENT

DRUGS (7)
  1. HEPARIN [Concomitant]
     Active Substance: HEPARIN SODIUM
  2. IRON [Concomitant]
     Active Substance: IRON
  3. CINACALCET HCL [Suspect]
     Active Substance: CINACALCET HYDROCHLORIDE
     Indication: CALCIPHYLAXIS
     Dosage: UNK
     Route: 065
  4. VITAMIN K1 [Concomitant]
     Active Substance: PHYTONADIONE
     Dosage: UNK
  5. COUMARIN [Concomitant]
     Active Substance: COUMARIN
  6. SODIUM THIOSULPHATE [Concomitant]
     Active Substance: SODIUM THIOSULFATE
     Indication: CALCIPHYLAXIS
  7. SODIUM THIOSULPHATE [Concomitant]
     Active Substance: SODIUM THIOSULFATE
     Indication: END STAGE RENAL DISEASE

REACTIONS (8)
  - Myocardial infarction [Fatal]
  - Cerebral haemorrhage [Fatal]
  - Sepsis [Fatal]
  - Pneumonia [Fatal]
  - Ileus [Fatal]
  - Disease progression [Unknown]
  - Cardiac failure [Fatal]
  - Off label use [Unknown]
